FAERS Safety Report 5661612-0 (Version None)
Quarter: 2008Q1

REPORT INFORMATION
  Report Type: 
  Country: None (occurrence: None)
  Receive Date: 20080312
  Receipt Date: 20080306
  Transmission Date: 20080703
  Serious: Yes (Other)
  Sender: FDA-Public Use
  Company Number: PHRM2007FR02850

PATIENT
  Age: 60 Year
  Sex: Female
  Weight: 72 kg

DRUGS (6)
  1. LEPONEX [Suspect]
     Indication: SCHIZOPHRENIA
     Dosage: 500 MG/DAY
     Route: 048
     Dates: start: 20040325, end: 20080206
  2. LEPONEX [Suspect]
     Dosage: 400 MG/DAY
     Route: 048
     Dates: start: 20080207
  3. ZOLOFT [Concomitant]
     Dosage: 100 MG/DAY
     Route: 048
     Dates: start: 20040325
  4. HAVLANE [Concomitant]
     Dosage: 1 MG/DAY
     Route: 048
     Dates: start: 20040325
  5. TRIMEPRAZINE TAB [Concomitant]
     Dosage: 30 MG/DAY
     Route: 048
     Dates: start: 20040325
  6. DAFLON 500 [Concomitant]
     Dosage: 500 MG, BID
     Route: 048
     Dates: start: 20040325

REACTIONS (4)
  - CHRONIC LYMPHOCYTIC LEUKAEMIA [None]
  - LEUKOCYTOSIS [None]
  - LYMPHADENOPATHY [None]
  - LYMPHOCYTE COUNT INCREASED [None]
